FAERS Safety Report 21130981 (Version 9)
Quarter: 2023Q2

REPORT INFORMATION
  Report Type: Spontaneous
  Country: US (occurrence: US)
  Receive Date: 20220726
  Receipt Date: 20230627
  Transmission Date: 20230722
  Serious: Yes (Hospitalization, Other)
  Sender: FDA-Public Use
  Company Number: US-BRISTOL-MYERS SQUIBB COMPANY-2022-075218

PATIENT
  Age: 75 Year
  Sex: Female

DRUGS (1)
  1. ZEPOSIA [Suspect]
     Active Substance: OZANIMOD HYDROCHLORIDE
     Indication: Product used for unknown indication
     Route: 048
     Dates: end: 2022

REACTIONS (12)
  - Internal haemorrhage [Recovering/Resolving]
  - Nausea [Unknown]
  - Illness [Unknown]
  - Pain [Unknown]
  - Abdominal pain [Unknown]
  - Fatigue [Unknown]
  - Platelet count decreased [Unknown]
  - Diarrhoea [Unknown]
  - Haematochezia [Unknown]
  - Weight decreased [Unknown]
  - Drug ineffective [Unknown]
  - Large intestinal haemorrhage [Unknown]
